FAERS Safety Report 11971406 (Version 1)
Quarter: 2016Q1

REPORT INFORMATION
  Report Type: Report from Study
  Country: US (occurrence: US)
  Receive Date: 20160128
  Receipt Date: 20160128
  Transmission Date: 20160526
  Serious: No
  Sender: FDA-Public Use
  Company Number: PHEH2016US002207

PATIENT
  Sex: Female

DRUGS (1)
  1. ARZERRA [Suspect]
     Active Substance: OFATUMUMAB
     Indication: NERVOUS SYSTEM DISORDER
     Dosage: 700 MG/KG, ONCE EVERY TWO WEEKS
     Route: 065

REACTIONS (1)
  - Off label use [Unknown]
